FAERS Safety Report 23195440 (Version 1)
Quarter: 2023Q4

REPORT INFORMATION
  Report Type: Spontaneous
  Country: FR (occurrence: FR)
  Receive Date: 20231117
  Receipt Date: 20231117
  Transmission Date: 20240109
  Serious: Yes (Death, Hospitalization, Other)
  Sender: FDA-Public Use
  Company Number: None

PATIENT
  Age: 56 Year
  Sex: Female
  Weight: 95 kg

DRUGS (2)
  1. YERVOY [Suspect]
     Active Substance: IPILIMUMAB
     Indication: Malignant melanoma
     Route: 042
     Dates: start: 20230704, end: 20230816
  2. OPDIVO [Suspect]
     Active Substance: NIVOLUMAB
     Indication: Malignant melanoma
     Route: 042
     Dates: start: 20230704, end: 20230816

REACTIONS (7)
  - Thrombotic microangiopathy [Fatal]
  - Hepatitis [Recovering/Resolving]
  - Thyroiditis [Recovered/Resolved]
  - Disseminated intravascular coagulation [Fatal]
  - Adrenal insufficiency [Recovered/Resolved]
  - Multiple organ dysfunction syndrome [Fatal]
  - Prescribed underdose [Unknown]

NARRATIVE: CASE EVENT DATE: 20230724
